FAERS Safety Report 24590259 (Version 2)
Quarter: 2024Q4

REPORT INFORMATION
  Report Type: Spontaneous
  Country: CN (occurrence: CN)
  Receive Date: 20241107
  Receipt Date: 20241112
  Transmission Date: 20250115
  Serious: Yes (Hospitalization, Other)
  Sender: NOVARTIS
  Company Number: CN-002147023-NVSC2024CN212586

PATIENT
  Age: 39 Year
  Sex: Female
  Weight: 39 kg

DRUGS (4)
  1. CYCLOSPORINE [Suspect]
     Active Substance: CYCLOSPORINE
     Indication: Graft versus host disease
     Dosage: 25 MG, BID
     Route: 048
     Dates: start: 20240830, end: 20241016
  2. VORICONAZOLE [Suspect]
     Active Substance: VORICONAZOLE
     Indication: Fungal infection
     Dosage: 200 MG, BID
     Route: 048
     Dates: start: 20240902, end: 20241016
  3. METHYLPREDNISOLONE [Concomitant]
     Active Substance: METHYLPREDNISOLONE
     Indication: Graft versus host disease
     Dosage: 8 MG, BID
     Route: 048
     Dates: start: 20240830, end: 20241016
  4. MYCOPHENOLATE SODIUM [Concomitant]
     Active Substance: MYCOPHENOLATE SODIUM
     Indication: Graft versus host disease
     Dosage: 360 MG, BID
     Route: 048
     Dates: start: 20240830, end: 20241016

REACTIONS (20)
  - Seizure [Recovered/Resolved]
  - Cerebral ischaemia [Unknown]
  - Cortical laminar necrosis [Unknown]
  - Altered state of consciousness [Unknown]
  - Intracranial pressure increased [Unknown]
  - Confusional state [Unknown]
  - Strabismus [Unknown]
  - Infection [Unknown]
  - Haemangioma [Unknown]
  - Asthenia [Unknown]
  - Secondary hypertension [Unknown]
  - Blood pressure fluctuation [Unknown]
  - Headache [Unknown]
  - Dizziness [Unknown]
  - Miosis [Unknown]
  - Eyelid function disorder [Unknown]
  - Oxygen saturation decreased [Unknown]
  - Trismus [Unknown]
  - Drug level decreased [Unknown]
  - Electrolyte imbalance [Unknown]

NARRATIVE: CASE EVENT DATE: 20241016
